FAERS Safety Report 8386739-4 (Version None)
Quarter: 2012Q2

REPORT INFORMATION
  Report Type: 
  Country: None (occurrence: None)
  Receive Date: 20120525
  Receipt Date: 20120517
  Transmission Date: 20120825
  Serious: Yes (Congenital Anomaly, Other)
  Sender: FDA-Public Use
  Company Number: JP-VERTEX PHARMACEUTICALS INC.-AE-2012-005187

PATIENT
  Age: 63 Year
  Sex: Female

DRUGS (13)
  1. PEG-INTRON [Concomitant]
     Indication: HEPATITIS C
     Route: 051
     Dates: start: 20120202, end: 20120314
  2. PEG-INTRON [Concomitant]
     Route: 051
     Dates: start: 20120315
  3. PEG-INTRON [Concomitant]
     Route: 051
     Dates: end: 20120404
  4. PEG-INTRON [Concomitant]
     Route: 051
     Dates: start: 20120426
  5. PEG-INTRON [Concomitant]
     Route: 051
     Dates: start: 20120405, end: 20120425
  6. REBETOL [Concomitant]
     Route: 048
     Dates: start: 20120217, end: 20120222
  7. REBETOL [Concomitant]
     Route: 048
     Dates: start: 20120223
  8. TELAVIC (TELAPREVIR) [Suspect]
     Indication: HEPATITIS C
     Route: 048
     Dates: start: 20120202, end: 20120314
  9. REBETOL [Concomitant]
     Indication: HEPATITIS C
     Route: 048
     Dates: start: 20120202, end: 20120216
  10. TELAVIC (TELAPREVIR) [Suspect]
     Route: 048
     Dates: start: 20120315
  11. TELAVIC (TELAPREVIR) [Suspect]
     Route: 048
     Dates: start: 20120405, end: 20120411
  12. TELAVIC (TELAPREVIR) [Suspect]
     Route: 048
     Dates: start: 20120412, end: 20120425
  13. TELAVIC (TELAPREVIR) [Suspect]
     Route: 048
     Dates: start: 20120329, end: 20120404

REACTIONS (2)
  - HAEMOGLOBIN DECREASED [None]
  - WHITE BLOOD CELL COUNT DECREASED [None]
